FAERS Safety Report 9129775 (Version 1)
Quarter: 2013Q1

REPORT INFORMATION
  Report Type: Spontaneous
  Country: US (occurrence: US)
  Receive Date: 20130125
  Receipt Date: 20130125
  Transmission Date: 20140127
  Serious: Yes (Other)
  Sender: FDA-Public Use
  Company Number: US-ASTRAZENECA-2013SE03819

PATIENT
  Age: 62 Year
  Sex: Male

DRUGS (1)
  1. BRILINTA [Suspect]
     Route: 048
     Dates: end: 20130116

REACTIONS (7)
  - Hypertension [Unknown]
  - Hypertension [Unknown]
  - Cerebrovascular accident [Unknown]
  - Intraventricular haemorrhage [Unknown]
  - Coronary artery disease [Unknown]
  - Lipids increased [Unknown]
  - Peripheral vascular disorder [Unknown]
